FAERS Safety Report 9870149 (Version 2)
Quarter: 2014Q1

REPORT INFORMATION
  Report Type: Spontaneous
  Country: FR (occurrence: None)
  Receive Date: 20140131
  Receipt Date: 20140228
  Transmission Date: 20141002
  Serious: Yes (Life-Threatening)
  Sender: FDA-Public Use
  Company Number: FK201400223

PATIENT
  Age: 43 Year
  Sex: Male

DRUGS (7)
  1. PIPERACILLIN/TAZOBACTAM [Suspect]
     Indication: ANTIBIOTIC THERAPY
     Route: 042
     Dates: start: 20131109
  2. SEROPRAM [Suspect]
     Indication: PRODUCT USED FOR UNKNOWN INDICATION
  3. INVANZ [Suspect]
     Indication: PRODUCT USED FOR UNKNOWN INDICATION
     Route: 042
     Dates: start: 20131109
  4. CANCIDAS [Suspect]
     Indication: PRODUCT USED FOR UNKNOWN INDICATION
     Route: 042
     Dates: start: 20131109
  5. TRIFLUCAN [Suspect]
     Indication: PRODUCT USED FOR UNKNOWN INDICATION
     Route: 048
     Dates: start: 20131109
  6. BECOTIDE (BECLOMETASONE DIPROPIONATE) (BECLOMETASONE DIPROPIONATE) [Concomitant]
  7. VENTOLINE (SALBUTAMOL) [Concomitant]

REACTIONS (2)
  - Atrioventricular block complete [None]
  - Rhythm idioventricular [None]
